FAERS Safety Report 16111582 (Version 1)
Quarter: 2019Q2

REPORT INFORMATION
  Report Type: Spontaneous
  Country: US (occurrence: US)
  Receive Date: 20190322
  Receipt Date: 20190322
  Transmission Date: 20190711
  Serious: Yes (Disabling)
  Sender: FDA-Public Use
  Company Number: None

PATIENT
  Age: 71 Year
  Sex: Female

DRUGS (1)
  1. PROLIA [Suspect]
     Active Substance: DENOSUMAB
     Indication: OSTEOPOROSIS
     Dosage: ?          OTHER FREQUENCY:EVERY SIX MONTHS;?
     Route: 030
     Dates: start: 20170529

REACTIONS (6)
  - Drug hypersensitivity [None]
  - Pruritus [None]
  - Urticaria [None]
  - Erythema [None]
  - Poor quality sleep [None]
  - Swelling [None]

NARRATIVE: CASE EVENT DATE: 20180606
